FAERS Safety Report 8183630-3 (Version None)
Quarter: 2012Q1

REPORT INFORMATION
  Report Type: 
  Country: None (occurrence: None)
  Receive Date: 20120130
  Receipt Date: 20111130
  Transmission Date: 20120608
  Serious: Yes (Hospitalization)
  Sender: FDA-Public Use
  Company Number: 047122

PATIENT
  Sex: Female

DRUGS (15)
  1. LEVOTHYROXINE SODIUM [Concomitant]
  2. CABERGOLINE [Concomitant]
  3. NORETHINDRONE ACETATE [Concomitant]
  4. LEUPROLIDE ACETATE [Concomitant]
  5. XYREM [Suspect]
     Indication: SOMNOLENCE
     Dosage: DOSE NIGHTLY ORAL, 4 MG BID, NIGHTLY ORAL, 4 MG BID, NIGHTLY ORAL
     Route: 048
     Dates: start: 20080301
  6. XYREM [Suspect]
     Indication: NARCOLEPSY
     Dosage: DOSE NIGHTLY ORAL, 4 MG BID, NIGHTLY ORAL, 4 MG BID, NIGHTLY ORAL
     Route: 048
     Dates: start: 20080301
  7. XYREM [Suspect]
     Indication: SOMNOLENCE
     Dosage: DOSE NIGHTLY ORAL, 4 MG BID, NIGHTLY ORAL, 4 MG BID, NIGHTLY ORAL
     Route: 048
     Dates: end: 20111123
  8. XYREM [Suspect]
     Indication: NARCOLEPSY
     Dosage: DOSE NIGHTLY ORAL, 4 MG BID, NIGHTLY ORAL, 4 MG BID, NIGHTLY ORAL
     Route: 048
     Dates: end: 20111123
  9. XYREM [Suspect]
     Indication: SOMNOLENCE
     Dosage: DOSE NIGHTLY ORAL, 4 MG BID, NIGHTLY ORAL, 4 MG BID, NIGHTLY ORAL
     Route: 048
     Dates: start: 20111126
  10. XYREM [Suspect]
     Indication: NARCOLEPSY
     Dosage: DOSE NIGHTLY ORAL, 4 MG BID, NIGHTLY ORAL, 4 MG BID, NIGHTLY ORAL
     Route: 048
     Dates: start: 20111126
  11. PROZAC [Suspect]
     Indication: DEPRESSION
     Dosage: 40 MG QD ORAL, 80 MG QD ORAL, LOWERED TO UNKNOWN DOSE ORAL
     Route: 048
     Dates: start: 20110901, end: 20111001
  12. PROZAC [Suspect]
     Indication: DEPRESSION
     Dosage: 40 MG QD ORAL, 80 MG QD ORAL, LOWERED TO UNKNOWN DOSE ORAL
     Route: 048
     Dates: start: 20111001, end: 20111101
  13. PROZAC [Suspect]
     Indication: DEPRESSION
     Dosage: 40 MG QD ORAL, 80 MG QD ORAL, LOWERED TO UNKNOWN DOSE ORAL
     Route: 048
     Dates: start: 20111101, end: 20111101
  14. ESZOPICLONE [Concomitant]
  15. KEPPRA [Suspect]
     Dates: start: 20111101

REACTIONS (4)
  - ANXIETY [None]
  - MALAISE [None]
  - CONVULSION [None]
  - DEPRESSION [None]
